FAERS Safety Report 6026347-3 (Version None)
Quarter: 2008Q4

REPORT INFORMATION
  Report Type: 
  Country: None (occurrence: None)
  Receive Date: 20081222
  Receipt Date: 20080919
  Transmission Date: 20090506
  Serious: No
  Sender: FDA-Public Use
  Company Number: US-WYE-H04515908

PATIENT
  Age: 23 Year
  Sex: Male
  Weight: 90.8 kg

DRUGS (5)
  1. PRISTIQ           (DESVENLAFAXINE SUCCINATE MONOHYDRATE, EXTENDED RELE [Suspect]
     Indication: DEPRESSION
     Dosage: 50 MG 1X PER 1 DAY, ORAL
     Route: 048
     Dates: start: 20080522, end: 20080501
  2. DETROL [Concomitant]
  3. XANAX [Concomitant]
  4. ROZEREM [Concomitant]
  5. VICODNI      (HYDOCODONE BITARTRATE/PARACETAMOL) [Concomitant]

REACTIONS (7)
  - ANOREXIA [None]
  - CHANGE OF BOWEL HABIT [None]
  - LIBIDO DISORDER [None]
  - NAUSEA [None]
  - URINARY HESITATION [None]
  - URINE OUTPUT DECREASED [None]
  - VOMITING [None]
